FAERS Safety Report 19052952 (Version 1)
Quarter: 2021Q1

REPORT INFORMATION
  Report Type: Report from Study
  Country: DE (occurrence: DE)
  Receive Date: 20210325
  Receipt Date: 20210325
  Transmission Date: 20210420
  Serious: Yes (Other)
  Sender: FDA-Public Use
  Company Number: DE-CELLTRION INC.-2021DE003812

PATIENT

DRUGS (5)
  1. COPANLISIB. [Suspect]
     Active Substance: COPANLISIB
     Dosage: 45 MG
     Dates: start: 20200917
  2. COPANLISIB. [Suspect]
     Active Substance: COPANLISIB
     Dosage: LAST ADMINISTRATION BEFORE ADVERSE EVENT ONSET
     Dates: start: 20210128
  3. TRUXIMA [Suspect]
     Active Substance: RITUXIMAB-ABBS
     Dosage: LAST ADMINISTRATION BEFORE ADVERSE EVENT ONSET
     Dates: start: 20210114
  4. TRUXIMA [Suspect]
     Active Substance: RITUXIMAB-ABBS
     Indication: MARGINAL ZONE LYMPHOMA
     Dosage: 375 MG/M2, DAY 1 ON EVERY CYCLE
     Route: 042
     Dates: start: 20200820
  5. COPANLISIB. [Suspect]
     Active Substance: COPANLISIB
     Indication: MARGINAL ZONE LYMPHOMA
     Dosage: 60 MG, DAYS 1, 8, AND 15 OF EVERY CYCLE
     Route: 042
     Dates: start: 20200820

REACTIONS (2)
  - Diarrhoea [Not Recovered/Not Resolved]
  - Off label use [Unknown]

NARRATIVE: CASE EVENT DATE: 20210207
